FAERS Safety Report 9330208 (Version 1)
Quarter: 2013Q2

REPORT INFORMATION
  Report Type: Report from Study
  Country: US (occurrence: US)
  Receive Date: 20130604
  Receipt Date: 20130604
  Transmission Date: 20140414
  Serious: Yes (Life-Threatening, Hospitalization)
  Sender: FDA-Public Use
  Company Number: US-US-EMD SERONO, INC.-7208027

PATIENT
  Age: 40 Year
  Sex: Female

DRUGS (1)
  1. REBIF [Suspect]
     Indication: PRODUCT USED FOR UNKNOWN INDICATION
     Route: 058
     Dates: start: 20110225

REACTIONS (8)
  - Post procedural haemorrhage [Recovered/Resolved]
  - Blood pressure decreased [Recovered/Resolved]
  - Haemangioma [Unknown]
  - Uterine leiomyoma [Recovered/Resolved]
  - Procedural pain [Not Recovered/Not Resolved]
  - Mood altered [Unknown]
  - Central nervous system lesion [Unknown]
  - Depression [Unknown]
